FAERS Safety Report 19511842 (Version 1)
Quarter: 2021Q3

REPORT INFORMATION
  Report Type: Spontaneous
  Country: US (occurrence: US)
  Receive Date: 20210709
  Receipt Date: 20210709
  Transmission Date: 20211014
  Serious: No
  Sender: FDA-Public Use
  Company Number: US-JNJFOC-20210707024

PATIENT
  Age: 67 Year
  Sex: Female

DRUGS (16)
  1. COVID?19 VACCINE NOS. [Suspect]
     Active Substance: COVID-19 VACCINE NOS
     Route: 065
     Dates: start: 20210623
  2. PAMELOR [Concomitant]
     Active Substance: NORTRIPTYLINE HYDROCHLORIDE
     Route: 065
  3. ROSUVASTATIN CALCIUM. [Concomitant]
     Active Substance: ROSUVASTATIN CALCIUM
     Route: 065
  4. JARDIANCE [Concomitant]
     Active Substance: EMPAGLIFLOZIN
     Route: 065
  5. LEXAPRO [Concomitant]
     Active Substance: ESCITALOPRAM OXALATE
     Route: 065
  6. OXYCODONE [Concomitant]
     Active Substance: OXYCODONE
     Route: 065
  7. RELAFEN [Concomitant]
     Active Substance: NABUMETONE
     Route: 065
  8. PROTONIX [Concomitant]
     Active Substance: PANTOPRAZOLE SODIUM
     Route: 065
  9. NORVASC [Concomitant]
     Active Substance: AMLODIPINE BESYLATE
     Route: 065
  10. HCTZ [Concomitant]
     Active Substance: HYDROCHLOROTHIAZIDE
     Route: 065
  11. STELARA [Suspect]
     Active Substance: USTEKINUMAB
     Indication: PSORIASIS
     Route: 058
     Dates: start: 20210419
  12. ZANAFLEX [Concomitant]
     Active Substance: TIZANIDINE HYDROCHLORIDE
     Route: 065
  13. BUSPAR [Concomitant]
     Active Substance: BUSPIRONE HYDROCHLORIDE
     Route: 065
  14. OXYCONTIN [Concomitant]
     Active Substance: OXYCODONE HYDROCHLORIDE
     Route: 065
  15. LYRICA [Concomitant]
     Active Substance: PREGABALIN
     Route: 065
  16. OZEMPIC [Concomitant]
     Active Substance: SEMAGLUTIDE
     Route: 065

REACTIONS (3)
  - Throat tightness [Unknown]
  - Psoriasis [Not Recovered/Not Resolved]
  - Dyspnoea [Unknown]

NARRATIVE: CASE EVENT DATE: 20210624
